FAERS Safety Report 7647048-1 (Version None)
Quarter: 2011Q3

REPORT INFORMATION
  Report Type: 
  Country: None (occurrence: None)
  Receive Date: 20110801
  Receipt Date: 20110721
  Transmission Date: 20111222
  Serious: Yes (Hospitalization)
  Sender: FDA-Public Use
  Company Number: IS-JNJFOC-20101202983

PATIENT
  Age: 5 Decade
  Sex: Female

DRUGS (17)
  1. RABEPRAZOLE SODIUM [Concomitant]
     Indication: ILL-DEFINED DISORDER
     Route: 065
  2. LEVOMEPROMAZINE [Interacting]
     Indication: SLEEP DISORDER THERAPY
     Route: 065
  3. ATORVASTATIN [Concomitant]
     Indication: ILL-DEFINED DISORDER
     Route: 065
  4. METHYLPHENIDATE [Suspect]
     Indication: ATTENTION DEFICIT/HYPERACTIVITY DISORDER
     Route: 048
  5. LEVOMEPROMAZINE [Interacting]
     Route: 065
  6. ACETAMINOPHEN W/ CODEINE [Concomitant]
     Indication: ILL-DEFINED DISORDER
     Route: 065
  7. TRAMADOL HCL [Interacting]
     Indication: ILL-DEFINED DISORDER
     Route: 065
  8. MODAFINIL [Interacting]
     Indication: HYPERVIGILANCE
     Route: 065
  9. METOPROLOL TARTRATE [Concomitant]
     Indication: ILL-DEFINED DISORDER
     Route: 065
  10. MODAFINIL [Interacting]
     Route: 065
  11. DULOXETIME HYDROCHLORIDE [Interacting]
     Indication: DEPRESSION
     Route: 065
  12. SERTRALINE HYDROCHLORIDE [Interacting]
     Indication: DEPRESSION
     Route: 065
  13. MAGNESIUM [Concomitant]
     Indication: ILL-DEFINED DISORDER
     Route: 065
  14. CLOMIPRAMINE HYDROCHLORIDE [Interacting]
     Indication: DEPRESSION
     Route: 065
  15. METFORMIN HCL [Concomitant]
     Indication: ILL-DEFINED DISORDER
     Route: 065
  16. LEVOTHYROXINE SODIUM [Concomitant]
     Indication: ILL-DEFINED DISORDER
     Route: 065
  17. VITAMIN D [Concomitant]
     Indication: ILL-DEFINED DISORDER
     Route: 065

REACTIONS (8)
  - PRURITUS [None]
  - WEIGHT DECREASED [None]
  - DRUG INTERACTION [None]
  - FLANK PAIN [None]
  - ANAEMIA [None]
  - RENAL IMPAIRMENT [None]
  - DECREASED APPETITE [None]
  - SEROTONIN SYNDROME [None]
